FAERS Safety Report 6203492-0 (Version None)
Quarter: 2009Q2

REPORT INFORMATION
  Report Type: 
  Country: None (occurrence: None)
  Receive Date: 20090527
  Receipt Date: 20090521
  Transmission Date: 20091009
  Serious: Yes (Life-Threatening, Hospitalization, Other)
  Sender: FDA-Public Use
  Company Number: CH-CELGENEUS-151-21880-09031219

PATIENT
  Sex: Female
  Weight: 61 kg

DRUGS (17)
  1. REVLIMID [Suspect]
     Route: 048
     Dates: start: 20070101
  2. REVLIMID [Suspect]
     Route: 048
     Dates: start: 20080206
  3. REVLIMID [Suspect]
     Route: 048
     Dates: end: 20081101
  4. REVLIMID [Suspect]
     Route: 048
     Dates: start: 20090101
  5. NEUPOGEN [Suspect]
     Indication: NEUTROPENIA
     Route: 058
     Dates: start: 20090202
  6. SPIRICORT [Concomitant]
     Indication: DRUG USE FOR UNKNOWN INDICATION
     Route: 065
     Dates: end: 20090330
  7. SPIRICORT [Concomitant]
     Route: 065
     Dates: start: 20090331, end: 20090406
  8. SPIRICORT [Concomitant]
     Route: 065
     Dates: start: 20090407, end: 20090401
  9. CYCLOKAPRON [Concomitant]
     Indication: DRUG USE FOR UNKNOWN INDICATION
     Route: 065
     Dates: end: 20090320
  10. CALCIUM D3 SANDOZ [Concomitant]
     Indication: DRUG USE FOR UNKNOWN INDICATION
     Route: 065
  11. NEBILET [Concomitant]
     Indication: DRUG USE FOR UNKNOWN INDICATION
     Route: 065
  12. ELTROXIN [Concomitant]
     Indication: DRUG USE FOR UNKNOWN INDICATION
     Route: 065
  13. SODIUM CHLORIDE [Concomitant]
     Indication: DRUG USE FOR UNKNOWN INDICATION
     Dosage: 2 ML
     Route: 065
  14. VENTOLIN [Concomitant]
     Indication: DRUG USE FOR UNKNOWN INDICATION
     Dosage: 2 DROPS
     Route: 065
  15. LORAZEPAM [Concomitant]
     Indication: DRUG USE FOR UNKNOWN INDICATION
     Route: 065
  16. SOLU-MEDROL [Concomitant]
     Indication: DRUG USE FOR UNKNOWN INDICATION
  17. ZOMETA [Concomitant]
     Indication: DRUG USE FOR UNKNOWN INDICATION
     Route: 051

REACTIONS (1)
  - PULMONARY ALVEOLAR HAEMORRHAGE [None]
